FAERS Safety Report 8237864-X (Version None)
Quarter: 2012Q1

REPORT INFORMATION
  Report Type: 
  Country: None (occurrence: None)
  Receive Date: 20120327
  Receipt Date: 20120320
  Transmission Date: 20120608
  Serious: Yes (Life-Threatening, Hospitalization, Other)
  Sender: FDA-Public Use
  Company Number: PHFR2011GB03182

PATIENT
  Sex: Female

DRUGS (10)
  1. DIAZEPAM [Suspect]
     Dosage: UNK UKN, UNK
  2. METFORMIN HCL [Concomitant]
     Dosage: 850 MG, UNK
     Route: 048
  3. PIOGLITAZONE [Concomitant]
     Dosage: 45 MG, QD
     Route: 048
  4. VENLAFAXINE [Concomitant]
     Dosage: 300 MG, UNK
     Route: 048
  5. VALPROATE SODIUM [Concomitant]
     Dosage: UNK UKN, UNK
     Route: 048
  6. CLOZARIL [Suspect]
     Indication: INTENTIONAL SELF-INJURY
     Dosage: 500 MG,
     Route: 048
     Dates: start: 20060525
  7. LITHIUM CARBONATE [Concomitant]
     Dosage: 600 MG, UNK
  8. CLOZARIL [Suspect]
     Dosage: 175 MG IN MORNING AND 275 MG AT NIGHT
     Dates: end: 20120318
  9. SIMVASTATIN [Concomitant]
     Dosage: 40 MG, QD
     Route: 048
  10. LANSOPRAZOLE [Concomitant]
     Dosage: 30 MG, QD
     Route: 048

REACTIONS (6)
  - CHRONIC OBSTRUCTIVE PULMONARY DISEASE [None]
  - CONVULSION [None]
  - PNEUMONIA [None]
  - DIABETES MELLITUS [None]
  - RESPIRATORY DEPRESSION [None]
  - SOMNOLENCE [None]
